FAERS Safety Report 10129814 (Version 2)
Quarter: 2014Q2

REPORT INFORMATION
  Report Type: Spontaneous
  Country: US (occurrence: US)
  Receive Date: 20140428
  Receipt Date: 20140428
  Transmission Date: 20141212
  Serious: Yes (Other)
  Sender: FDA-Public Use
  Company Number: US-SA-2013SA100470

PATIENT
  Age: 54 Year
  Sex: Female

DRUGS (18)
  1. LANTUS SOLOSTAR [Suspect]
     Indication: TYPE 2 DIABETES MELLITUS
     Dosage: DOSE: 40 AM AND 50 BEDTIME. PRODUCT STARTED ONE TO TWO YEARS AGO.
     Route: 051
     Dates: start: 2012
  2. LANTUS SOLOSTAR [Suspect]
     Indication: BLOOD GLUCOSE INCREASED
     Dosage: DOSE: 40 AM AND 50 BEDTIME. PRODUCT STARTED ONE TO TWO YEARS AGO.
     Route: 051
     Dates: start: 2012
  3. LANTUS SOLOSTAR [Suspect]
     Indication: TYPE 2 DIABETES MELLITUS
     Dosage: DOSE: 40 AM AND 50 BEDTIME. PRODUCT STARTED ONE TO TWO YEARS AGO.
     Route: 051
     Dates: start: 2012
  4. LANTUS SOLOSTAR [Suspect]
     Indication: BLOOD GLUCOSE INCREASED
     Dosage: DOSE: 40 AM AND 50 BEDTIME. PRODUCT STARTED ONE TO TWO YEARS AGO.
     Route: 051
     Dates: start: 2012
  5. LANTUS SOLOSTAR [Suspect]
     Indication: TYPE 2 DIABETES MELLITUS
     Dosage: DOSE: 40 AM AND 50 BEDTIME. PRODUCT STARTED ONE TO TWO YEARS AGO.
     Route: 051
     Dates: start: 2012
  6. LANTUS SOLOSTAR [Suspect]
     Indication: BLOOD GLUCOSE INCREASED
     Dosage: DOSE: 40 AM AND 50 BEDTIME. PRODUCT STARTED ONE TO TWO YEARS AGO.
     Route: 051
     Dates: start: 2012
  7. LANTUS SOLOSTAR [Suspect]
     Indication: TYPE 2 DIABETES MELLITUS
     Dosage: DOSE: 40 AM AND 50 BEDTIME
     Route: 051
     Dates: start: 20110920, end: 20140228
  8. LANTUS SOLOSTAR [Suspect]
     Indication: BLOOD GLUCOSE INCREASED
     Dosage: DOSE: 40 AM AND 50 BEDTIME
     Route: 051
     Dates: start: 20110920, end: 20140228
  9. LANTUS SOLOSTAR [Suspect]
     Indication: TYPE 2 DIABETES MELLITUS
     Dosage: DOSE: 40 AM AND 50 BEDTIME
     Route: 051
     Dates: start: 20140303, end: 20140410
  10. LANTUS SOLOSTAR [Suspect]
     Indication: BLOOD GLUCOSE INCREASED
     Dosage: DOSE: 40 AM AND 50 BEDTIME
     Route: 051
     Dates: start: 20140303, end: 20140410
  11. HUMALOG [Suspect]
     Dosage: DOSE:5 UNIT(S)
     Route: 065
  12. SOLOSTAR [Concomitant]
     Dosage: PRODUCT STARTED ONE TO TWO YEARS AGO.
  13. SOLOSTAR [Concomitant]
     Dosage: PRODUCT STARTED ONE TO TWO YEARS AGO.
  14. ATRACTYLODES LANCEA RHIZOME/ALISMA RHIZOME/POLYPORUS SCLEROTIUM/PORIA SCLEROTIUM/CINNAMON BARK [Concomitant]
     Indication: BLOOD GLUCOSE INCREASED
     Dosage: DAILY DOSE: 4000
     Dates: start: 20130613
  15. ASPIRIN [Concomitant]
     Indication: CARDIAC DISORDER
     Dates: start: 2012
  16. PIROXICAM [Concomitant]
     Indication: FIBROMYALGIA
     Dates: start: 20130201
  17. CYCLOBENZAPRINE [Concomitant]
     Indication: FIBROMYALGIA
     Dates: start: 20130201
  18. PRAVASTATIN [Concomitant]
     Indication: BLOOD CHOLESTEROL INCREASED
     Dates: start: 2007

REACTIONS (5)
  - Knee arthroplasty [Unknown]
  - Blood glucose increased [Unknown]
  - Drug ineffective [Unknown]
  - Incorrect product storage [Unknown]
  - Glycosylated haemoglobin increased [Unknown]
